FAERS Safety Report 12256102 (Version 1)
Quarter: 2016Q2

REPORT INFORMATION
  Report Type: Spontaneous
  Country: US (occurrence: None)
  Receive Date: 20160411
  Receipt Date: 20160411
  Transmission Date: 20160815
  Serious: Yes (Other)
  Sender: FDA-Public Use
  Company Number: None

PATIENT
  Age: 33 Year
  Sex: Female
  Weight: 58.97 kg

DRUGS (3)
  1. ICY HOT MEDICATED NO MESS APPLICATOR [Suspect]
     Active Substance: MENTHOL
  2. TURMERIC [Concomitant]
     Active Substance: TURMERIC
  3. WOMEN MULTIVITAMIN [Concomitant]

REACTIONS (5)
  - Application site burn [None]
  - Application site pain [None]
  - Application site dryness [None]
  - Application site rash [None]
  - Application site discomfort [None]

NARRATIVE: CASE EVENT DATE: 20160403
